FAERS Safety Report 7816109-6 (Version None)
Quarter: 2011Q4

REPORT INFORMATION
  Report Type: 
  Country: None (occurrence: None)
  Receive Date: 20111015
  Receipt Date: 20111005
  Transmission Date: 20120403
  Serious: Yes (Hospitalization, Other)
  Sender: FDA-Public Use
  Company Number: US-ASTRAZENECA-2010SE27092

PATIENT
  Age: 79 Year
  Sex: Female

DRUGS (7)
  1. NEXIUM [Suspect]
     Indication: HIATUS HERNIA
     Route: 048
  2. PRILOSEC [Suspect]
     Route: 048
  3. PRILOSEC [Suspect]
     Route: 048
  4. ANTIBIOTICS [Suspect]
     Route: 065
  5. NEXIUM [Suspect]
     Indication: GASTRITIS
     Route: 048
  6. NEXIUM [Suspect]
     Indication: GASTROOESOPHAGEAL REFLUX DISEASE
     Route: 048
  7. CRESTOR [Suspect]
     Route: 048

REACTIONS (14)
  - TOOTH INFECTION [None]
  - GASTROOESOPHAGEAL REFLUX DISEASE [None]
  - REFLUX GASTRITIS [None]
  - GASTRIC CYST [None]
  - NEUROGENIC BLADDER [None]
  - DRUG INEFFECTIVE [None]
  - GASTRITIS [None]
  - UPPER LIMB FRACTURE [None]
  - DIARRHOEA [None]
  - GASTROENTERITIS VIRAL [None]
  - CELLULITIS [None]
  - OESOPHAGITIS [None]
  - DRUG DOSE OMISSION [None]
  - URINARY TRACT INFECTION [None]
